FAERS Safety Report 14638915 (Version 2)
Quarter: 2018Q2

REPORT INFORMATION
  Report Type: Spontaneous
  Country: US (occurrence: US)
  Receive Date: 20180315
  Receipt Date: 20180410
  Transmission Date: 20180711
  Serious: No
  Sender: FDA-Public Use
  Company Number: US-HETERO CORPORATE-HET2018US00184

PATIENT
  Sex: Female
  Weight: 50.79 kg

DRUGS (1)
  1. IRBESARTAN. [Suspect]
     Active Substance: IRBESARTAN
     Indication: BLOOD PRESSURE MEASUREMENT
     Dosage: 75 MILLIGRAM, QD(ONCE A DAY IN THE EVENING)
     Route: 065
     Dates: start: 20171212

REACTIONS (7)
  - Tongue discomfort [Recovered/Resolved]
  - Throat irritation [Recovered/Resolved]
  - Dizziness [Recovered/Resolved]
  - Oral discomfort [Recovered/Resolved]
  - Hypotension [Recovered/Resolved]
  - Oesophageal pain [Recovered/Resolved]
  - Product taste abnormal [Recovered/Resolved]
